FAERS Safety Report 9552751 (Version 1)
Quarter: 2013Q3

REPORT INFORMATION
  Report Type: Spontaneous
  Country: US (occurrence: US)
  Receive Date: 20130925
  Receipt Date: 20130925
  Transmission Date: 20140515
  Serious: No
  Sender: FDA-Public Use
  Company Number: US-PURDUE-USA-2012-0096924

PATIENT
  Sex: Female

DRUGS (1)
  1. MORPHINE SULFATE EXTENDED-RELEASE TABLETS (RHODES 74-769) [Suspect]
     Indication: BACK PAIN
     Dosage: 60 MG, Q8H
     Route: 048
     Dates: start: 2010

REACTIONS (5)
  - Drug withdrawal syndrome [Unknown]
  - Chills [Unknown]
  - Tremor [Unknown]
  - Abdominal pain upper [Unknown]
  - Nausea [Unknown]
